FAERS Safety Report 26036976 (Version 1)
Quarter: 2025Q4

REPORT INFORMATION
  Report Type: Spontaneous
  Country: CN (occurrence: CN)
  Receive Date: 20251112
  Receipt Date: 20251112
  Transmission Date: 20260118
  Serious: Yes (Other)
  Sender: SANDOZ
  Company Number: CN-002147023-NVSC2025CN169299

PATIENT
  Age: 38 Year
  Sex: Male
  Weight: 70 kg

DRUGS (1)
  1. BRINZOLAMIDE [Suspect]
     Active Substance: BRINZOLAMIDE
     Indication: Intraocular pressure increased
     Dosage: 0.1 ML, BID
     Route: 047
     Dates: start: 20251008, end: 20251011

REACTIONS (3)
  - Punctate keratitis [Recovered/Resolved]
  - Ocular discomfort [Recovered/Resolved]
  - Foreign body sensation in eyes [Recovered/Resolved]

NARRATIVE: CASE EVENT DATE: 20251011
